FAERS Safety Report 11694478 (Version 2)
Quarter: 2015Q4

REPORT INFORMATION
  Report Type: Report from Study
  Country: PL (occurrence: PL)
  Receive Date: 20151103
  Receipt Date: 20151130
  Transmission Date: 20160304
  Serious: Yes (Hospitalization)
  Sender: FDA-Public Use
  Company Number: PL-BAXALTA-2015BAX002826

PATIENT
  Age: 4 Year
  Sex: Male

DRUGS (6)
  1. FEIBA NF [Suspect]
     Active Substance: ANTI-INHIBITOR COAGULANT COMPLEX
     Dosage: 500 IU, 2X A DAY, VIALS A 500IU
     Route: 042
     Dates: start: 20150117, end: 20150122
  2. ENALAPRIL [Concomitant]
     Active Substance: ENALAPRIL
     Indication: HYPERTENSION
     Dosage: 2.5 MG, 2X A DAY
     Route: 048
     Dates: start: 201401
  3. METOPROLOL [Concomitant]
     Active Substance: METOPROLOL
     Indication: HYPERTENSION
     Dosage: 12.5 MG, 1X A DAY
     Route: 048
     Dates: start: 201401
  4. FEIBA NF [Suspect]
     Active Substance: ANTI-INHIBITOR COAGULANT COMPLEX
     Dosage: UNK
     Dates: start: 20150113, end: 20150113
  5. FEIBA NF [Suspect]
     Active Substance: ANTI-INHIBITOR COAGULANT COMPLEX
     Indication: HAEMORRHAGE PROPHYLAXIS
     Dosage: 1500 IU, EVERY 2 DY
     Route: 042
     Dates: start: 20150113, end: 20150113
  6. FEIBA NF [Suspect]
     Active Substance: ANTI-INHIBITOR COAGULANT COMPLEX
     Dosage: UNK
     Route: 042
     Dates: start: 20150117, end: 20150122

REACTIONS (1)
  - Skin injury [Recovered/Resolved]

NARRATIVE: CASE EVENT DATE: 20150113
